FAERS Safety Report 25807173 (Version 3)
Quarter: 2025Q4

REPORT INFORMATION
  Report Type: Spontaneous
  Country: EU (occurrence: EU)
  Receive Date: 20250916
  Receipt Date: 20251008
  Transmission Date: 20260117
  Serious: Yes (Other)
  Sender: MYLAN
  Company Number: EU-TEVA-VS-3368200

PATIENT
  Age: 32 Year
  Sex: Male

DRUGS (2)
  1. ASPIRIN [Suspect]
     Active Substance: ASPIRIN
     Indication: Retinal vein occlusion
     Dosage: 100 MILLIGRAM, QD, 100 MG, QD
  2. ASPIRIN [Suspect]
     Active Substance: ASPIRIN
     Indication: Antiphospholipid syndrome

REACTIONS (4)
  - Vitreous haemorrhage [Not Recovered/Not Resolved]
  - Product use in unapproved indication [Unknown]
  - Product prescribing issue [Unknown]
  - Unintentional use for unapproved indication [Unknown]
